FAERS Safety Report 17340141 (Version 1)
Quarter: 2020Q1

REPORT INFORMATION
  Report Type: Spontaneous
  Country: US (occurrence: US)
  Receive Date: 20200129
  Receipt Date: 20200129
  Transmission Date: 20200409
  Serious: No
  Sender: FDA-Public Use
  Company Number: US-ALLERGAN-1923488US

PATIENT
  Age: 44 Year
  Sex: Female
  Weight: 71.66 kg

DRUGS (2)
  1. LEVOTHYROXINE. [Concomitant]
     Active Substance: LEVOTHYROXINE
     Indication: HYPERTHYROIDISM
  2. BOTOX COSMETIC [Suspect]
     Active Substance: ONABOTULINUMTOXINA
     Indication: SKIN WRINKLING
     Dosage: 50 UNITS, SINGLE
     Dates: start: 201806, end: 201806

REACTIONS (3)
  - Urticaria [Recovered/Resolved]
  - Lip swelling [Recovered/Resolved]
  - Off label use [Unknown]

NARRATIVE: CASE EVENT DATE: 201806
